FAERS Safety Report 7025031-7 (Version None)
Quarter: 2010Q4

REPORT INFORMATION
  Report Type: 
  Country: None (occurrence: None)
  Receive Date: 20101001
  Receipt Date: 20100927
  Transmission Date: 20110411
  Serious: Yes (Death)
  Sender: FDA-Public Use
  Company Number: US-ABBOTT-10P-163-0673306-00

PATIENT
  Sex: Female
  Weight: 85.806 kg

DRUGS (30)
  1. ZEMPLAR [Suspect]
     Indication: PRODUCT USED FOR UNKNOWN INDICATION
  2. ALBUTEROL [Concomitant]
     Indication: CARDIAC FAILURE CONGESTIVE
     Dosage: NEBULIZER 0.5-3 CC EVERY 4 HOURS AS REQUIRED
  3. ALLEGRA [Concomitant]
     Indication: PRURITUS
  4. ALPRAZOLAM [Concomitant]
     Indication: PRODUCT USED FOR UNKNOWN INDICATION
  5. ARICEPT [Concomitant]
     Indication: DEMENTIA
  6. CARDIZEM [Concomitant]
     Indication: HYPERTENSION
  7. CHOLESTYRIME [Concomitant]
     Indication: GASTROINTESTINAL DISORDER
     Dosage: 1 DOSE ORALLY
  8. CITALOPRAM HYDROBROMIDE [Concomitant]
     Indication: DEPRESSION
  9. PROCRIT [Concomitant]
     Indication: ANAEMIA
     Dosage: BLOOD COUNT DEPENDENT
  10. FERROUS SULFATE [Concomitant]
     Indication: BLOOD COUNT
  11. PLAVIX [Concomitant]
     Indication: CAROTID ARTERY DISEASE
  12. PREDNISONE [Concomitant]
     Indication: ASTHMA
  13. TORSEMIDE [Concomitant]
     Indication: CARDIAC FAILURE CONGESTIVE
     Dosage: BY WEIGHT
  14. VIT C [Concomitant]
     Indication: PRODUCT USED FOR UNKNOWN INDICATION
  15. ADVAIR DISKUS 100/50 [Concomitant]
     Indication: ASTHMA
  16. ADVAIR DISKUS 100/50 [Concomitant]
     Indication: CARDIAC FAILURE CONGESTIVE
  17. O2 [Concomitant]
     Indication: PRODUCT USED FOR UNKNOWN INDICATION
     Dosage: NASAL CANNULA
  18. SINGULAIR [Concomitant]
     Indication: ASTHMA
  19. FLUOCINONIDE [Concomitant]
     Indication: PRURITUS
     Route: 061
  20. KEPPRA [Concomitant]
     Indication: CEREBROVASCULAR ACCIDENT
  21. LIPITOR [Concomitant]
     Indication: BLOOD CHOLESTEROL
  22. LOPRESSOR [Concomitant]
     Indication: BLOOD CHOLESTEROL INCREASED
  23. NAMENDA [Concomitant]
     Indication: DEMENTIA
  24. NYSTATIN [Concomitant]
     Indication: PRODUCT USED FOR UNKNOWN INDICATION
     Route: 061
  25. LANTUS [Concomitant]
     Indication: DIABETES MELLITUS
  26. HUMALIN [Concomitant]
     Indication: DIABETES MELLITUS
     Dosage: DIABETES SLIDING SCALE
  27. PREDNISOLONE [Concomitant]
     Indication: PRODUCT USED FOR UNKNOWN INDICATION
  28. XALATAN [Concomitant]
     Indication: GLAUCOMA
     Dosage: 1 DROP BOTH EYES AT BEDTIME
  29. FLUOCINONIDE [Concomitant]
     Route: 061
  30. BETOPTIC [Concomitant]
     Indication: INTRAOCULAR PRESSURE INCREASED
     Dosage: 1 DROP IN LEFT EYE TWICE DAILY

REACTIONS (1)
  - CARDIAC FAILURE CONGESTIVE [None]
